FAERS Safety Report 19865948 (Version 1)
Quarter: 2021Q3

REPORT INFORMATION
  Report Type: Spontaneous
  Country: US (occurrence: US)
  Receive Date: 20210922
  Receipt Date: 20210922
  Transmission Date: 20211014
  Serious: No
  Sender: FDA-Public Use
  Company Number: US-AMGEN-USASP2021142509

PATIENT
  Age: 59 Year
  Sex: Male

DRUGS (1)
  1. PROLIA [Suspect]
     Active Substance: DENOSUMAB
     Indication: OSTEOPOROSIS
     Dosage: 60 MILLIGRAM
     Route: 065
     Dates: start: 20210414

REACTIONS (7)
  - Nausea [Unknown]
  - Migraine [Unknown]
  - Rash pruritic [Unknown]
  - Abdominal discomfort [Unknown]
  - Rash [Unknown]
  - Balance disorder [Unknown]
  - Inner ear disorder [Unknown]

NARRATIVE: CASE EVENT DATE: 20210414
